FAERS Safety Report 16581464 (Version 1)
Quarter: 2019Q3

REPORT INFORMATION
  Report Type: Spontaneous
  Country: DE (occurrence: DE)
  Receive Date: 20190716
  Receipt Date: 20190716
  Transmission Date: 20191004
  Serious: Yes (Other)
  Sender: FDA-Public Use
  Company Number: DE-009507513-1907DEU006926

PATIENT
  Age: 55 Year
  Sex: Female

DRUGS (9)
  1. TAXOTERE [Suspect]
     Active Substance: DOCETAXEL
     Dosage: UNK, CYCLICAL
     Dates: start: 201906
  2. VARGATEF [Suspect]
     Active Substance: NINTEDANIB
     Dosage: UNK UNK, CYCLICAL
     Dates: start: 201905
  3. ALIMTA [Concomitant]
     Active Substance: PEMETREXED DISODIUM
  4. PEMBROLIZUMAB. [Suspect]
     Active Substance: PEMBROLIZUMAB
     Indication: ADENOCARCINOMA
     Dosage: UNK
     Dates: start: 2018
  5. TAXOTERE [Suspect]
     Active Substance: DOCETAXEL
     Dosage: UNK, CYCLICAL
     Dates: start: 201906
  6. TAXOTERE [Suspect]
     Active Substance: DOCETAXEL
     Dosage: UNK UNK, CYCLICAL
     Dates: start: 201905
  7. VARGATEF [Suspect]
     Active Substance: NINTEDANIB
     Dosage: UNK, CYCLICAL
     Dates: start: 201906
  8. VARGATEF [Suspect]
     Active Substance: NINTEDANIB
     Dosage: UNK
     Dates: start: 201906
  9. CISPLATIN. [Concomitant]
     Active Substance: CISPLATIN
     Dosage: UNK
     Dates: start: 2018

REACTIONS (8)
  - Chromosome analysis abnormal [Unknown]
  - Drug hypersensitivity [Unknown]
  - Dyspnoea [Unknown]
  - Malignant neoplasm progression [Unknown]
  - Vomiting [Unknown]
  - Pulmonary embolism [Unknown]
  - Haemoptysis [Unknown]
  - Liver function test increased [Unknown]

NARRATIVE: CASE EVENT DATE: 2019
